FAERS Safety Report 10229239 (Version 1)
Quarter: 2014Q2

REPORT INFORMATION
  Report Type: Spontaneous
  Country: CA (occurrence: CA)
  Receive Date: 20140611
  Receipt Date: 20140611
  Transmission Date: 20141212
  Serious: Yes (Other)
  Sender: FDA-Public Use
  Company Number: CA-AMGEN INC.-CANSP2014042325

PATIENT
  Age: 62 Year
  Sex: Female

DRUGS (7)
  1. ENBREL [Suspect]
     Indication: RHEUMATOID ARTHRITIS
     Dosage: 50 MG, UNK
     Route: 065
     Dates: start: 20121012
  2. CELEBREX [Concomitant]
     Dosage: UNK
  3. ASAFEN                             /01619501/ [Concomitant]
     Dosage: UNK
  4. CALCIUM [Concomitant]
     Dosage: UNK
  5. LEUCOVORIN                         /00566701/ [Concomitant]
     Dosage: UNK
  6. FOLIC ACID [Concomitant]
     Dosage: UNK
  7. MTX                                /00113801/ [Concomitant]
     Dosage: UNK

REACTIONS (3)
  - Dry eye [Recovering/Resolving]
  - Faeces soft [Recovering/Resolving]
  - Osteoarthritis [Recovering/Resolving]
